FAERS Safety Report 8380337-4 (Version None)
Quarter: 2012Q2

REPORT INFORMATION
  Report Type: 
  Country: None (occurrence: None)
  Receive Date: 20120523
  Receipt Date: 20120515
  Transmission Date: 20120825
  Serious: Yes (Other)
  Sender: FDA-Public Use
  Company Number: US-ASTRAZENECA-2012SE09245

PATIENT
  Age: 77 Year
  Sex: Female

DRUGS (1)
  1. NEXIUM [Suspect]
     Route: 048

REACTIONS (7)
  - PAIN [None]
  - ULCER HAEMORRHAGE [None]
  - MALAISE [None]
  - GLAUCOMA [None]
  - GASTROOESOPHAGEAL REFLUX DISEASE [None]
  - VISION BLURRED [None]
  - INTENTIONAL DRUG MISUSE [None]
